FAERS Safety Report 8765252 (Version 1)
Quarter: 2012Q4

REPORT INFORMATION
  Report Type: 
  Country: ES (occurrence: ES)
  Receive Date: 20120903
  Receipt Date: 20120903
  Transmission Date: 20130627
  Serious: Yes (Hospitalization)
  Sender: FDA-Public Use
  Company Number: ES-PAR PHARMACEUTICAL, INC-2012SCPR004584

PATIENT

DRUGS (5)
  1. LEVETIRACETAM [Suspect]
     Indication: GRAND MAL CONVULSION
     Dosage: 1 g, twice daily
     Route: 048
  2. DEXAMETHASONE [Concomitant]
     Indication: ASTROCYTOMA
     Dosage: 12 mg, daily
     Route: 065
  3. DEXAMETHASONE [Concomitant]
     Dosage: 2 mg, qd
     Route: 065
  4. DEXAMETHASONE [Concomitant]
     Dosage: 6 mg, qd
     Route: 065
  5. DEXAMETHASONE [Concomitant]
     Dosage: 4 mg, qd
     Route: 065

REACTIONS (1)
  - Drug reaction with eosinophilia and systemic symptoms [Recovered/Resolved]
